FAERS Safety Report 25177541 (Version 1)
Quarter: 2025Q2

REPORT INFORMATION
  Report Type: Spontaneous
  Country: US (occurrence: US)
  Receive Date: 20250409
  Receipt Date: 20250409
  Transmission Date: 20250716
  Serious: No
  Sender: ROCHE
  Company Number: US-ROCHE-10000247061

PATIENT
  Sex: Male
  Weight: 93.89 kg

DRUGS (2)
  1. ACTEMRA [Suspect]
     Active Substance: TOCILIZUMAB
     Indication: Giant cell arteritis
     Route: 058
     Dates: start: 20250216
  2. PREDNISONE [Concomitant]
     Active Substance: PREDNISONE
     Indication: Giant cell arteritis
     Dosage: BEGAN AT 40MG, TAPERING OFF, CURRENTLY ON 5 MG AND WILL END IN ONE WEEK
     Route: 048
     Dates: start: 202501

REACTIONS (3)
  - Product dose omission issue [Unknown]
  - Device malfunction [Unknown]
  - No adverse event [Unknown]
